FAERS Safety Report 12299824 (Version 4)
Quarter: 2017Q3

REPORT INFORMATION
  Report Type: Spontaneous
  Country: DE (occurrence: DE)
  Receive Date: 20160425
  Receipt Date: 20170717
  Transmission Date: 20171127
  Serious: Yes (Other)
  Sender: FDA-Public Use
  Company Number: DE-PFIZER INC-2016217817

PATIENT
  Age: 52 Year
  Sex: Female

DRUGS (3)
  1. SOMAVERT [Suspect]
     Active Substance: PEGVISOMANT
     Dosage: 15 MG
     Dates: start: 201603
  2. SOMAVERT [Suspect]
     Active Substance: PEGVISOMANT
     Indication: ACROMEGALY
     Dosage: 20 MG, UNK
     Dates: start: 2008
  3. SOMAVERT [Suspect]
     Active Substance: PEGVISOMANT
     Dosage: 20 MG

REACTIONS (7)
  - Neoplasm progression [Unknown]
  - Headache [Unknown]
  - Product quality issue [Unknown]
  - Incorrect dose administered [Unknown]
  - Fatigue [Unknown]
  - Poor quality sleep [Unknown]
  - Drug dose omission [Unknown]
